FAERS Safety Report 6433815-9 (Version None)
Quarter: 2009Q4

REPORT INFORMATION
  Report Type: 
  Country: None (occurrence: None)
  Receive Date: 20091110
  Receipt Date: 20091102
  Transmission Date: 20100525
  Serious: Yes (Hospitalization)
  Sender: FDA-Public Use
  Company Number: NZ-ASTRAZENECA-2009SE23632

PATIENT
  Age: 54 Year
  Sex: Female

DRUGS (2)
  1. HEPARIN LOW MOLECULAR WEIGHT [Suspect]
     Dosage: SINGLE DOSE, 2 KU
     Dates: start: 20041111, end: 20041111
  2. LIGNOCAINE [Suspect]
     Dosage: SINGLE DOSE, 20 ML
     Route: 058
     Dates: start: 20041111, end: 20041111

REACTIONS (4)
  - ANAPHYLACTIC REACTION [None]
  - FLUSHING [None]
  - MALAISE [None]
  - PARAESTHESIA [None]
